FAERS Safety Report 18042277 (Version 1)
Quarter: 2020Q3

REPORT INFORMATION
  Report Type: Spontaneous
  Country: US (occurrence: US)
  Receive Date: 20200720
  Receipt Date: 20200720
  Transmission Date: 20201103
  Serious: No
  Sender: FDA-Public Use
  Company Number: US-HORIZON-KRY-0969-2020

PATIENT
  Age: 39 Year
  Sex: Male

DRUGS (1)
  1. KRYSTEXXA [Suspect]
     Active Substance: PEGLOTICASE
     Indication: PRODUCT USED FOR UNKNOWN INDICATION
     Dosage: IV 8MG/ML
     Route: 042
     Dates: start: 20200609

REACTIONS (2)
  - Blood uric acid increased [Unknown]
  - Adverse drug reaction [Unknown]
